FAERS Safety Report 18048996 (Version 1)
Quarter: 2020Q3

REPORT INFORMATION
  Report Type: Spontaneous
  Country: US (occurrence: US)
  Receive Date: 20200721
  Receipt Date: 20200721
  Transmission Date: 20201103
  Serious: No
  Sender: FDA-Public Use
  Company Number: US-MYLANLABS-2020M1063655

PATIENT
  Sex: Female
  Weight: 43 kg

DRUGS (1)
  1. FENTANYL TRANSDERMAL SYSTEM [Suspect]
     Active Substance: FENTANYL
     Indication: PAIN
     Dosage: 25 MICROGRAM, Q3D
     Route: 062

REACTIONS (2)
  - Application site rash [Not Recovered/Not Resolved]
  - Product adhesion issue [Not Recovered/Not Resolved]
